FAERS Safety Report 10726378 (Version 2)
Quarter: 2015Q2

REPORT INFORMATION
  Report Type: Spontaneous
  Country: US (occurrence: US)
  Receive Date: 20150121
  Receipt Date: 20150520
  Transmission Date: 20150821
  Serious: No
  Sender: FDA-Public Use
  Company Number: US-PFIZER INC-2015018754

PATIENT
  Age: 68 Year
  Sex: Male
  Weight: 91 kg

DRUGS (5)
  1. AMLODIPINE [Concomitant]
     Active Substance: AMLODIPINE BESYLATE
     Dosage: 5 MG, UNK
  2. LYRICA [Suspect]
     Active Substance: PREGABALIN
     Indication: PAIN IN EXTREMITY
     Dosage: 75 MG, 2X/DAY (ONE IN MORNING AND ONE IN EVENING)
  3. INSULIN [Concomitant]
     Active Substance: INSULIN NOS
     Dosage: 70/30 UNITS, 2X/DAY
  4. LOSARTAN [Concomitant]
     Active Substance: LOSARTAN
     Dosage: 50 MG, UNK
  5. ASPIRIN. [Concomitant]
     Active Substance: ASPIRIN
     Dosage: 81 MG, 1X/DAY

REACTIONS (2)
  - Gingival pain [Recovering/Resolving]
  - Ear pain [Recovering/Resolving]

NARRATIVE: CASE EVENT DATE: 2014
